FAERS Safety Report 8967120 (Version 1)
Quarter: 2012Q4

REPORT INFORMATION
  Report Type: 
  Country: US (occurrence: US)
  Receive Date: 20121217
  Receipt Date: 20121217
  Transmission Date: 20130627
  Serious: Yes (Death, Other)
  Sender: FDA-Public Use
  Company Number: PHEH2012US024389

PATIENT
  Sex: Male

DRUGS (2)
  1. ZOMETA [Suspect]
     Dosage: 4 mg, UNK
     Dates: end: 20120522
  2. DEXAMETHASONE [Concomitant]
     Dosage: 4 mg, TID

REACTIONS (4)
  - Death [Fatal]
  - Brachial plexopathy [Unknown]
  - Subclavian vein thrombosis [Unknown]
  - Neck pain [Unknown]
